FAERS Safety Report 24461455 (Version 1)
Quarter: 2024Q4

REPORT INFORMATION
  Report Type: Report from Study
  Country: US (occurrence: US)
  Receive Date: 20241018
  Receipt Date: 20241018
  Transmission Date: 20250115
  Serious: No
  Sender: ROCHE
  Company Number: US-ROCHE-3537124

PATIENT
  Age: 76 Year
  Sex: Male
  Weight: 85.73 kg

DRUGS (6)
  1. RITUXAN [Suspect]
     Active Substance: RITUXIMAB
     Indication: Non-Hodgkin^s lymphoma
     Route: 041
     Dates: start: 20240227
  2. RITUXAN HYCELA [Suspect]
     Active Substance: HYALURONIDASE (HUMAN RECOMBINANT)\RITUXIMAB
     Indication: Non-Hodgkin^s lymphoma
     Route: 058
     Dates: start: 20240327, end: 20240327
  3. RITUXAN HYCELA [Suspect]
     Active Substance: HYALURONIDASE (HUMAN RECOMBINANT)\RITUXIMAB
     Indication: Diffuse large B-cell lymphoma
  4. RITUXAN HYCELA [Suspect]
     Active Substance: HYALURONIDASE (HUMAN RECOMBINANT)\RITUXIMAB
     Indication: Hodgkin^s disease
  5. RITUXAN HYCELA [Suspect]
     Active Substance: HYALURONIDASE (HUMAN RECOMBINANT)\RITUXIMAB
     Indication: Follicular lymphoma
  6. RUXIENCE [Concomitant]
     Active Substance: RITUXIMAB-PVVR
     Indication: Non-Hodgkin^s lymphoma

REACTIONS (7)
  - Infusion related reaction [Unknown]
  - Off label use [Unknown]
  - Tremor [Recovered/Resolved]
  - Gastrointestinal disorder [Recovered/Resolved]
  - Hypotension [Recovered/Resolved]
  - Weight decreased [Not Recovered/Not Resolved]
  - Pyrexia [Recovered/Resolved]

NARRATIVE: CASE EVENT DATE: 20240227
